FAERS Safety Report 14604511 (Version 1)
Quarter: 2018Q1

REPORT INFORMATION
  Report Type: Spontaneous
  Country: JP (occurrence: JP)
  Receive Date: 20180306
  Receipt Date: 20180306
  Transmission Date: 20180509
  Serious: Yes (Hospitalization, Other)
  Sender: FDA-Public Use
  Company Number: JP-ELI_LILLY_AND_COMPANY-JP201712010180

PATIENT
  Age: 75 Year
  Sex: Male

DRUGS (10)
  1. DOCETAXEL. [Suspect]
     Active Substance: DOCETAXEL
     Indication: SQUAMOUS CELL CARCINOMA OF LUNG
     Dosage: 60 MG/M2, OTHER
     Route: 041
     Dates: start: 20171213, end: 20180206
  2. SITAGLIPTIN PHOSPHATE [Concomitant]
     Active Substance: SITAGLIPTIN PHOSPHATE
     Indication: TYPE 2 DIABETES MELLITUS
     Dosage: 50 MG, DAILY
     Route: 048
     Dates: start: 20170713
  3. LOXOPROFEN SODIUM [Concomitant]
     Active Substance: LOXOPROFEN SODIUM
     Indication: CANCER PAIN
     Dosage: UNK, DAILY
     Route: 048
     Dates: start: 20170908
  4. CYRAMZA [Suspect]
     Active Substance: RAMUCIRUMAB
     Indication: SQUAMOUS CELL CARCINOMA OF LUNG
     Dosage: 10 MG/KG, OTHER
     Route: 041
     Dates: start: 20171213, end: 20180111
  5. TEPRENONE [Concomitant]
     Active Substance: TEPRENONE
     Indication: CHRONIC GASTRITIS
     Dosage: UNK, DAILY
     Route: 048
     Dates: start: 20170908
  6. ESOMEPRAZOLE MAGNESIUM. [Concomitant]
     Active Substance: ESOMEPRAZOLE MAGNESIUM
     Indication: PROPHYLAXIS AGAINST GASTROINTESTINAL ULCER
     Dosage: 20 MG, DAILY
     Route: 048
     Dates: start: 20171105
  7. MAGNESIUM OXIDE. [Concomitant]
     Active Substance: MAGNESIUM OXIDE
     Indication: CONSTIPATION
     Dosage: UNK, DAILY
     Route: 048
     Dates: start: 20171103
  8. ADENOSINE TRIPHOSPHATE DISODIUM [Concomitant]
     Active Substance: ADENOSINE TRIPHOSPHATE DISODIUM
     Indication: FACIAL PARALYSIS
     Dosage: 300 MG, DAILY
     Route: 048
     Dates: start: 20170824
  9. MECOBALAMIN [Concomitant]
     Active Substance: METHYLCOBALAMIN
     Indication: FACIAL PARALYSIS
     Dosage: 1500 UG, DAILY
     Route: 048
     Dates: start: 20170824
  10. NAFTOPIDIL [Concomitant]
     Active Substance: NAFTOPIDIL
     Indication: BENIGN PROSTATIC HYPERPLASIA
     Dosage: 75 MG, DAILY
     Route: 048

REACTIONS (4)
  - Haematuria [Recovered/Resolved]
  - Febrile neutropenia [Recovering/Resolving]
  - Stomatitis [Recovered/Resolved]
  - Infusion related reaction [Recovering/Resolving]

NARRATIVE: CASE EVENT DATE: 20171213
